FAERS Safety Report 25226417 (Version 1)
Quarter: 2025Q2

REPORT INFORMATION
  Report Type: Spontaneous
  Country: US (occurrence: US)
  Receive Date: 20250422
  Receipt Date: 20250422
  Transmission Date: 20250716
  Serious: Yes (Other)
  Sender: SANOFI AVENTIS
  Company Number: US-DialogSolutions-SAAVPROD-PI763052-C1

PATIENT
  Age: 68 Year
  Sex: Male

DRUGS (11)
  1. OXALIPLATIN [Suspect]
     Active Substance: OXALIPLATIN
     Indication: Colorectal cancer metastatic
  2. LEUCOVORIN [Suspect]
     Active Substance: LEUCOVORIN\LEUCOVORIN CALCIUM
     Indication: Colorectal cancer metastatic
  3. LEUCOVORIN [Suspect]
     Active Substance: LEUCOVORIN\LEUCOVORIN CALCIUM
  4. FLUOROURACIL [Suspect]
     Active Substance: FLUOROURACIL
     Indication: Colorectal cancer metastatic
  5. FLUOROURACIL [Suspect]
     Active Substance: FLUOROURACIL
  6. IRINOTECAN [Suspect]
     Active Substance: IRINOTECAN
     Indication: Colorectal cancer metastatic
  7. IRINOTECAN [Suspect]
     Active Substance: IRINOTECAN
  8. CETUXIMAB [Suspect]
     Active Substance: CETUXIMAB
     Indication: Colorectal cancer metastatic
  9. CETUXIMAB [Suspect]
     Active Substance: CETUXIMAB
  10. VEMURAFENIB [Suspect]
     Active Substance: VEMURAFENIB
     Indication: Colorectal cancer metastatic
     Route: 048
  11. VEMURAFENIB [Suspect]
     Active Substance: VEMURAFENIB
     Dosage: 240 MG, BID
     Route: 048

REACTIONS (1)
  - Abscess intestinal [Recovered/Resolved]
